FAERS Safety Report 7118283-6 (Version None)
Quarter: 2010Q4

REPORT INFORMATION
  Report Type: 
  Country: None (occurrence: None)
  Receive Date: 20101118
  Receipt Date: 20101118
  Transmission Date: 20110411
  Serious: Yes (Other)
  Sender: FDA-Public Use
  Company Number: None

PATIENT
  Sex: Female
  Weight: 112.0385 kg

DRUGS (1)
  1. DIVALPROEX SODIUM [Suspect]
     Indication: CONVULSION PROPHYLAXIS
     Dosage: 750MG BID PO
     Route: 048
     Dates: start: 20101027, end: 20101103

REACTIONS (1)
  - WEIGHT INCREASED [None]
